FAERS Safety Report 9092069 (Version 1)
Quarter: 2013Q1

REPORT INFORMATION
  Report Type: Report from Study
  Country: US (occurrence: US)
  Receive Date: 20130131
  Receipt Date: 20130131
  Transmission Date: 20140127
  Serious: No
  Sender: FDA-Public Use
  Company Number: US-ABBOTT-12P-163-1003755-00

PATIENT
  Age: 31 Year
  Sex: Female

DRUGS (4)
  1. HUMIRA [Suspect]
     Indication: ECZEMA
     Route: 058
     Dates: start: 20121030, end: 20121030
  2. HUMIRA [Suspect]
     Route: 058
     Dates: start: 20121031, end: 20121031
  3. KLONOPIN [Concomitant]
     Indication: INSOMNIA
     Dosage: AT HS
  4. HYDROXYZINE [Concomitant]
     Indication: PRURITUS
     Dosage: AT HS

REACTIONS (3)
  - Fatigue [Not Recovered/Not Resolved]
  - Dizziness [Not Recovered/Not Resolved]
  - Pain [Not Recovered/Not Resolved]
